FAERS Safety Report 9581801 (Version 1)
Quarter: 2013Q4

REPORT INFORMATION
  Report Type: Spontaneous
  Country: NL (occurrence: NL)
  Receive Date: 20131002
  Receipt Date: 20131002
  Transmission Date: 20140711
  Serious: Yes (Death, Other)
  Sender: FDA-Public Use
  Company Number: NL-B.I. PHARMACEUTICALS,INC./RIDGEFIELD-2013-BI-30853NL

PATIENT
  Sex: Male

DRUGS (2)
  1. PRADAXA [Suspect]
     Indication: PULMONARY EMBOLISM
  2. MARCOUMAR [Concomitant]
     Indication: PULMONARY EMBOLISM

REACTIONS (2)
  - Death [Fatal]
  - Pulmonary embolism [Unknown]
